FAERS Safety Report 9695720 (Version 1)
Quarter: 2013Q4

REPORT INFORMATION
  Report Type: Spontaneous
  Country: US (occurrence: None)
  Receive Date: 20131118
  Receipt Date: 20131118
  Transmission Date: 20140711
  Serious: Yes (Other)
  Sender: FDA-Public Use
  Company Number: None

PATIENT
  Age: 66 Year
  Sex: Female

DRUGS (1)
  1. ALBUTEROL SULFATE [Suspect]
     Indication: CHRONIC OBSTRUCTIVE PULMONARY DISEASE
     Dosage: ABOUT 16 DAYS OR MORE ONE DOSE 3 TIMES DAILY INHALATION
     Route: 055

REACTIONS (12)
  - Ageusia [None]
  - Dry throat [None]
  - Nasal discomfort [None]
  - Cough [None]
  - Pruritus [None]
  - Alopecia [None]
  - Alopecia [None]
  - Pruritus [None]
  - Rash [None]
  - Tremor [None]
  - Muscle spasms [None]
  - Pain in extremity [None]
